FAERS Safety Report 8269389-X (Version None)
Quarter: 2012Q2

REPORT INFORMATION
  Report Type: 
  Country: None (occurrence: None)
  Receive Date: 20120409
  Receipt Date: 20120307
  Transmission Date: 20120825
  Serious: Yes (Hospitalization)
  Sender: FDA-Public Use
  Company Number: US-ASTRAZENECA-2011SE76186

PATIENT
  Age: 76 Year
  Sex: Female

DRUGS (8)
  1. LOZARTAN POTASSIUM [Concomitant]
  2. PRAVASTATIN [Concomitant]
  3. ASPIRIN [Concomitant]
  4. NITROSTAT [Concomitant]
     Route: 060
  5. BRILINTA [Suspect]
     Indication: ACUTE CORONARY SYNDROME
     Route: 048
     Dates: start: 20120228
  6. PROTONIX [Concomitant]
  7. BISOPROLOL FUMARATE [Concomitant]
  8. FLOWMAGNESIUM [Concomitant]
     Dosage: 2 TABLETS

REACTIONS (2)
  - RASH [None]
  - DYSPNOEA [None]
